FAERS Safety Report 5708200-5 (Version None)
Quarter: 2008Q2

REPORT INFORMATION
  Report Type: 
  Country: None (occurrence: None)
  Receive Date: 20080417
  Receipt Date: 20080408
  Transmission Date: 20081010
  Serious: Yes (Hospitalization)
  Sender: FDA-Public Use
  Company Number: CA-JNJFOC-20080402761

PATIENT
  Sex: Male
  Weight: 81.65 kg

DRUGS (3)
  1. DURAGESIC-100 [Suspect]
     Indication: PAIN
     Route: 062
  2. NITROGLYCERIN [Concomitant]
     Route: 062
  3. COUDAMIN [Concomitant]
     Route: 048

REACTIONS (4)
  - CONSTIPATION [None]
  - CYSTITIS [None]
  - WEIGHT DECREASED [None]
  - WRONG TECHNIQUE IN DRUG USAGE PROCESS [None]
